FAERS Safety Report 8183254-8 (Version None)
Quarter: 2012Q1

REPORT INFORMATION
  Report Type: 
  Country: None (occurrence: None)
  Receive Date: 20120305
  Receipt Date: 20120220
  Transmission Date: 20120608
  Serious: Yes (Hospitalization)
  Sender: FDA-Public Use
  Company Number: JP-NOVOPROD-345415

PATIENT
  Age: 59 Year
  Sex: Male
  Weight: 75 kg

DRUGS (8)
  1. REZALTAS [Concomitant]
     Dosage: 1 TAB, QD
     Route: 048
  2. VICTOZA [Suspect]
     Indication: TYPE 2 DIABETES MELLITUS
     Dosage: 0.9 MG, QD
     Route: 058
     Dates: start: 20110317
  3. METFORMIN HCL [Concomitant]
     Dosage: 1500 MG, QD
     Route: 048
  4. VOGLIBOSE [Concomitant]
     Dosage: 3 TAB, QD
     Route: 048
  5. MITIGLINIDE CALCIUM [Concomitant]
     Dosage: 3 TAB, QD
     Route: 048
  6. ASPIRIN [Concomitant]
     Dosage: 100 MG, QD
     Route: 048
     Dates: start: 20100609
  7. OMEPRAZOLE [Concomitant]
     Dosage: 20 MG, QD
     Route: 048
     Dates: start: 20100609
  8. CRESTOR [Concomitant]
     Dosage: 2.5 MG, QD
     Route: 048
     Dates: start: 20100609

REACTIONS (1)
  - PANCREATIC CARCINOMA [None]
